FAERS Safety Report 9170461 (Version 1)
Quarter: 2013Q1

REPORT INFORMATION
  Report Type: Spontaneous
  Country: US (occurrence: None)
  Receive Date: 20130315
  Receipt Date: 20130315
  Transmission Date: 20140127
  Serious: Yes (Hospitalization, Disabling)
  Sender: FDA-Public Use
  Company Number: None

PATIENT
  Age: 50 Year
  Sex: Female
  Weight: 90.72 kg

DRUGS (1)
  1. RECLAST [Suspect]
     Dates: start: 20130214, end: 20130214

REACTIONS (7)
  - Malaise [None]
  - Pain [None]
  - Movement disorder [None]
  - Body temperature increased [None]
  - Arthralgia [None]
  - Arthralgia [None]
  - Pain in extremity [None]
